FAERS Safety Report 6532410-0 (Version None)
Quarter: 2010Q1

REPORT INFORMATION
  Report Type: 
  Country: None (occurrence: None)
  Receive Date: 20100108
  Receipt Date: 20100104
  Transmission Date: 20100710
  Serious: Yes (Other)
  Sender: FDA-Public Use
  Company Number: GB-ELI_LILLY_AND_COMPANY-GB200908000404

PATIENT
  Sex: Male

DRUGS (1)
  1. BYETTA [Suspect]
     Dosage: 10 UG, UNKNOWN
     Route: 058

REACTIONS (4)
  - CRANIAL NERVE DISORDER [None]
  - DYSPHAGIA [None]
  - DYSPHONIA [None]
  - MENINGEAL NEOPLASM [None]
